FAERS Safety Report 20459588 (Version 1)
Quarter: 2022Q1

REPORT INFORMATION
  Report Type: Report from Study
  Country: US (occurrence: US)
  Receive Date: 20220211
  Receipt Date: 20220211
  Transmission Date: 20220423
  Serious: Yes (Hospitalization)
  Sender: FDA-Public Use
  Company Number: US-JAZZ-2021-US-002164

PATIENT
  Age: 13 Year
  Sex: Male
  Weight: 44.2 kg

DRUGS (9)
  1. ASPARAGINASE ERWINIA CHRYSANTHEMI [Suspect]
     Active Substance: ASPARAGINASE ERWINIA CHRYSANTHEMI
     Indication: Acute lymphocytic leukaemia
     Dosage: 37.5 MILLIGRAM/SQ. METER, 3XWEEKLY PER 2W COURSE
     Route: 030
     Dates: start: 20200902, end: 20201207
  2. ASPARAGINASE ERWINIA CHRYSANTHEMI [Suspect]
     Active Substance: ASPARAGINASE ERWINIA CHRYSANTHEMI
     Dosage: 37.5 MILLIGRAM/SQ. METER, 3XWEEKLY PER 2W COURSE
     Route: 030
     Dates: start: 20201209, end: 20210201
  3. LIDOCAINE [Concomitant]
     Active Substance: LIDOCAINE
     Dosage: 1 APPLICATION
     Route: 061
     Dates: start: 20200902
  4. DIPHENHYDRAMINE [Concomitant]
     Active Substance: DIPHENHYDRAMINE
     Dosage: 25 MILLIGRAM, QID
     Route: 042
     Dates: start: 20200828
  5. FLUTICASONE [Concomitant]
     Active Substance: FLUTICASONE
     Dosage: 110 MICROGRAM, BID
     Dates: start: 20200916
  6. MONTELUKAST [Concomitant]
     Active Substance: MONTELUKAST SODIUM
     Dosage: 5 MILLIGRAM, QD
     Route: 048
     Dates: start: 20200916
  7. HEPARIN SODIUM [Concomitant]
     Active Substance: HEPARIN SODIUM
     Dosage: 50 UNITS, PRN
     Route: 042
     Dates: start: 20200821
  8. DEXTROSE AND SODIUM CHLORIDE [Concomitant]
     Active Substance: DEXTROSE MONOHYDRATE\SODIUM CHLORIDE
     Dosage: 1000 MILLILITER, PRN
     Route: 042
     Dates: start: 20210104
  9. PROPOFOL [Concomitant]
     Active Substance: PROPOFOL
     Dosage: 80 MILLIGRAM, SINGLE
     Route: 042
     Dates: start: 20210111

REACTIONS (8)
  - Dehydration [Recovered/Resolved]
  - Vomiting [Recovering/Resolving]
  - Dehydration [Recovered/Resolved]
  - Nausea [Recovering/Resolving]
  - Nausea [Recovered/Resolved]
  - Vomiting [Recovered/Resolved]
  - Nausea [Recovering/Resolving]
  - Vomiting [Recovering/Resolving]

NARRATIVE: CASE EVENT DATE: 20210104
